FAERS Safety Report 14212065 (Version 2)
Quarter: 2017Q4

REPORT INFORMATION
  Report Type: Spontaneous
  Country: JP (occurrence: JP)
  Receive Date: 20171121
  Receipt Date: 20171208
  Transmission Date: 20180321
  Serious: Yes (Life-Threatening)
  Sender: FDA-Public Use
  Company Number: JP-BIOCRYST PHARMACEUTICALS, INC.-2017BCR00184

PATIENT
  Age: 74 Year
  Sex: Male

DRUGS (11)
  1. DAIVITAMIX [Concomitant]
     Dosage: 2 ML, 1X/DAY
     Route: 042
     Dates: start: 20170128, end: 2017
  2. CEFAZOLIN NA [Suspect]
     Active Substance: CEFAZOLIN SODIUM
     Indication: PNEUMOCOCCAL INFECTION
     Dosage: 6 G, 1X/DAY
     Route: 042
     Dates: start: 20170201, end: 20170209
  3. TULOBUTEROL [Concomitant]
     Active Substance: TULOBUTEROL
     Dosage: 2 MG, 1X/DAY
  4. RAPIACTA [Suspect]
     Active Substance: PERAMIVIR
     Indication: INFLUENZA
     Dosage: 100 MG, 1X/DAY
     Route: 042
     Dates: start: 20170128, end: 20170128
  5. GLUCOSE [Concomitant]
     Active Substance: DEXTROSE
     Dosage: 1500 ML, 1X/DAY
     Route: 042
     Dates: start: 20170201, end: 20170203
  6. BFLUID [Concomitant]
     Active Substance: AMINO ACIDS\DEXTROSE\ELECTROLYTES NOS\VITAMINS
     Dosage: 1 UNK, 1X/DAY
     Route: 042
     Dates: start: 20170203, end: 2017
  7. WAKADENIN [Concomitant]
     Dosage: 20 MG, 1X/DAY
     Route: 042
     Dates: start: 20170128, end: 2017
  8. CEFTRIAXONE SODIUM HYDRATE [Suspect]
     Active Substance: CEFTRIAXONE SODIUM
     Indication: PNEUMONIA
     Dosage: 4 G, 1X/DAY
     Route: 042
     Dates: start: 20170128, end: 20170131
  9. ASCORBIC ACID. [Concomitant]
     Active Substance: ASCORBIC ACID
     Dosage: 2000 MG, 1X/DAY
     Route: 042
     Dates: start: 20170128, end: 2017
  10. LACTEC-D [Concomitant]
     Dosage: 1000 ML, 1X/DAY
     Route: 042
     Dates: start: 20170128, end: 20170131
  11. KNMG NO.3 [Concomitant]
     Dosage: 500 ML, 1X/DAY
     Route: 042
     Dates: start: 20170203, end: 2017

REACTIONS (1)
  - Haemorrhagic diathesis [Recovered/Resolved]

NARRATIVE: CASE EVENT DATE: 20170204
